FAERS Safety Report 7342838-7 (Version None)
Quarter: 2011Q1

REPORT INFORMATION
  Report Type: 
  Country: None (occurrence: None)
  Receive Date: 20110301
  Receipt Date: 20110218
  Transmission Date: 20110831
  Serious: Yes (Life-Threatening, Disabling)
  Sender: FDA-Public Use
  Company Number: LTI2011A00042

PATIENT
  Age: 73 Year
  Sex: Male

DRUGS (7)
  1. METFORMIN HCL [Suspect]
     Indication: TYPE 2 DIABETES MELLITUS
     Dosage: ORAL
     Route: 048
     Dates: start: 20090101, end: 20100501
  2. DIAMICRON (GLICLAZIDE) [Concomitant]
  3. PERMIXON (SERENOA REPENS) [Concomitant]
  4. TANAKAN (GINKGO BILOBA EXTRACT) [Concomitant]
  5. ACTOS [Suspect]
     Indication: TYPE 2 DIABETES MELLITUS
     Dosage: ORAL
     Route: 048
     Dates: start: 20090708, end: 20100501
  6. PREVISCAN (FLUINDIONE) [Concomitant]
  7. ATENOLOL [Concomitant]

REACTIONS (1)
  - BLADDER CANCER [None]
